FAERS Safety Report 11610662 (Version 1)
Quarter: 2015Q4

REPORT INFORMATION
  Report Type: Spontaneous
  Country: FR (occurrence: FR)
  Receive Date: 20151008
  Receipt Date: 20151008
  Transmission Date: 20160304
  Serious: Yes (Other)
  Sender: FDA-Public Use
  Company Number: FR-009507513-1510FRA002965

PATIENT
  Sex: Female

DRUGS (1)
  1. XELEVIA [Suspect]
     Active Substance: SITAGLIPTIN PHOSPHATE
     Indication: DIABETES MELLITUS
     Dosage: UNK
     Route: 048

REACTIONS (5)
  - Tooth loss [Not Recovered/Not Resolved]
  - Dysaesthesia [Not Recovered/Not Resolved]
  - Gingival recession [Not Recovered/Not Resolved]
  - Skin disorder [Not Recovered/Not Resolved]
  - Loose tooth [Not Recovered/Not Resolved]
